FAERS Safety Report 7283710-0 (Version None)
Quarter: 2011Q1

REPORT INFORMATION
  Report Type: 
  Country: None (occurrence: None)
  Receive Date: 20110204
  Receipt Date: 20110204
  Transmission Date: 20110831
  Serious: Yes (Life-Threatening, Other)
  Sender: FDA-Public Use
  Company Number: None

PATIENT
  Sex: Female
  Weight: 58.9676 kg

DRUGS (1)
  1. CRESTOR [Suspect]
     Dosage: 5MGM QD ORAL
     Route: 048
     Dates: start: 20100101, end: 20110101

REACTIONS (9)
  - SUICIDAL IDEATION [None]
  - INITIAL INSOMNIA [None]
  - PAIN IN EXTREMITY [None]
  - JOINT EFFUSION [None]
  - IRRITABILITY [None]
  - MIDDLE INSOMNIA [None]
  - SWELLING FACE [None]
  - ARTHRITIS [None]
  - OEDEMA PERIPHERAL [None]
